FAERS Safety Report 8136283-4 (Version None)
Quarter: 2012Q1

REPORT INFORMATION
  Report Type: 
  Country: None (occurrence: None)
  Receive Date: 20120214
  Receipt Date: 20120209
  Transmission Date: 20120608
  Serious: Yes (Other)
  Sender: FDA-Public Use
  Company Number: US-PFIZER INC-2012036540

PATIENT
  Sex: Male
  Weight: 77.098 kg

DRUGS (6)
  1. CHANTIX [Suspect]
     Indication: SMOKING CESSATION THERAPY
     Dosage: 0.5 MG, DAILY
     Route: 048
     Dates: start: 20110511
  2. MIRTAZAPINE [Suspect]
     Indication: DEPRESSION
     Dosage: 15 MG, DAILY
     Dates: start: 20110101
  3. PERCODAN-DEMI [Suspect]
     Indication: BACK PAIN
     Dosage: UNK, 3X/DAY
     Route: 048
     Dates: start: 20110101
  4. PRILOSEC [Concomitant]
     Indication: GASTROOESOPHAGEAL REFLUX DISEASE
     Dosage: UNK, DAILY
  5. CHANTIX [Suspect]
     Dosage: 1 MG, 2X/DAY
     Route: 048
     Dates: end: 20110628
  6. PERCODAN-DEMI [Suspect]
     Indication: PAIN IN EXTREMITY

REACTIONS (8)
  - DEPRESSION [None]
  - BACK PAIN [None]
  - ABDOMINAL PAIN UPPER [None]
  - ABNORMAL BEHAVIOUR [None]
  - DRUG INEFFECTIVE [None]
  - VERBAL ABUSE [None]
  - MEMORY IMPAIRMENT [None]
  - PAIN IN EXTREMITY [None]
